FAERS Safety Report 19023967 (Version 1)
Quarter: 2021Q1

REPORT INFORMATION
  Report Type: Spontaneous
  Country: DE (occurrence: DE)
  Receive Date: 20210318
  Receipt Date: 20210318
  Transmission Date: 20210420
  Serious: Yes (Hospitalization)
  Sender: FDA-Public Use
  Company Number: DE-AUROBINDO-AUR-APL-2021-010658

PATIENT
  Age: 15 Year
  Sex: Female
  Weight: 32 kg

DRUGS (7)
  1. KEPPRA [Suspect]
     Active Substance: LEVETIRACETAM
     Indication: EPILEPSY
     Dosage: UNK (0.8?0?1G)
     Route: 048
     Dates: start: 20150316
  2. TOPIRAMATE. [Suspect]
     Active Substance: TOPIRAMATE
     Indication: EPILEPSY
     Dosage: UNK (50?0?75MG)
     Route: 048
  3. L?THYROXIN [Concomitant]
     Active Substance: LEVOTHYROXINE SODIUM
     Indication: HYPOTHYROIDISM
     Dosage: 37.5 MICROGRAM, ONCE A DAY
     Route: 048
     Dates: start: 20171124
  4. DIAZEPAM. [Concomitant]
     Active Substance: DIAZEPAM
     Indication: EPILEPSY
     Dosage: 10 MILLIGRAM (IF THERE IS A SEIZURE} 3 MINUTES)
     Route: 054
  5. OXCARBAZEPINE. [Suspect]
     Active Substance: OXCARBAZEPINE
     Indication: EPILEPSY
     Dosage: UNK (300?0?600MG)
     Route: 048
     Dates: start: 20150316
  6. COENZYM Q10 [Concomitant]
     Indication: MELAS SYNDROME
     Dosage: 300 MILLIGRAM, ONCE A DAY (3 SEPARATED DOSES)
     Route: 048
     Dates: start: 20150409
  7. L?ARGININE [Concomitant]
     Active Substance: ARGININE
     Indication: PRODUCT USED FOR UNKNOWN INDICATION
     Dosage: 6 GRAM, ONCE A DAY (3 SEPARATED DOSES)
     Route: 048

REACTIONS (4)
  - Blood osmolarity decreased [Unknown]
  - Paraesthesia [Unknown]
  - Hyponatraemia [Unknown]
  - Headache [Unknown]

NARRATIVE: CASE EVENT DATE: 20180725
